FAERS Safety Report 18064895 (Version 1)
Quarter: 2020Q3

REPORT INFORMATION
  Report Type: Spontaneous
  Country: US (occurrence: US)
  Receive Date: 20200723
  Receipt Date: 20200723
  Transmission Date: 20201103
  Serious: Yes (Hospitalization)
  Sender: FDA-Public Use
  Company Number: None

PATIENT
  Sex: Female

DRUGS (11)
  1. ASPRIN LOW DOSE [Concomitant]
  2. METFORMIN [Concomitant]
     Active Substance: METFORMIN HYDROCHLORIDE
  3. TORSEMIDE. [Concomitant]
     Active Substance: TORSEMIDE
  4. ATOROVASTATIN [Concomitant]
  5. INCRUSE ELPT INH [Concomitant]
  6. SILDENAFIL. [Suspect]
     Active Substance: SILDENAFIL
     Indication: PULMONARY ARTERIAL HYPERTENSION
     Dosage: FREQUENCY: 3 TIMES A DAY
     Route: 048
     Dates: start: 20190422
  7. LETARIS [Concomitant]
     Active Substance: AMBRISENTAN
  8. GABAPENTIN. [Concomitant]
     Active Substance: GABAPENTIN
  9. ONE TOUCH KIT [Concomitant]
  10. PREDNISONE. [Concomitant]
     Active Substance: PREDNISONE
  11. SMZ/TMP DS [Concomitant]
     Active Substance: SULFAMETHOXAZOLE\TRIMETHOPRIM

REACTIONS (1)
  - Blood glucose decreased [None]
